FAERS Safety Report 15029321 (Version 1)
Quarter: 2018Q2

REPORT INFORMATION
  Report Type: Report from Study
  Country: US (occurrence: US)
  Receive Date: 20180619
  Receipt Date: 20180619
  Transmission Date: 20180711
  Serious: Yes (Other)
  Sender: FDA-Public Use
  Company Number: US-SA-2017SA240817

PATIENT
  Age: 73 Year
  Sex: Female

DRUGS (3)
  1. DUPILUMAB [Suspect]
     Active Substance: DUPILUMAB
     Indication: DERMATITIS CONTACT
     Dosage: 300 MG,QOW
     Route: 058
     Dates: start: 201711
  2. DUPILUMAB [Suspect]
     Active Substance: DUPILUMAB
     Indication: RASH
  3. DUPILUMAB [Suspect]
     Active Substance: DUPILUMAB
     Indication: DERMATITIS ATOPIC
     Dosage: 300 MG,1X
     Route: 058
     Dates: start: 20171111, end: 20171111

REACTIONS (9)
  - Pain [Recovering/Resolving]
  - Eye swelling [Recovering/Resolving]
  - Pruritus [Recovered/Resolved]
  - Underdose [Unknown]
  - Photophobia [Recovering/Resolving]
  - Eye pruritus [Recovered/Resolved]
  - Ulcerative keratitis [Recovering/Resolving]
  - Ocular hyperaemia [Recovered/Resolved]
  - Nail disorder [Unknown]

NARRATIVE: CASE EVENT DATE: 201711
